FAERS Safety Report 6855178-7 (Version None)
Quarter: 2010Q3

REPORT INFORMATION
  Report Type: 
  Country: None (occurrence: None)
  Receive Date: 20100717
  Receipt Date: 20090417
  Transmission Date: 20110219
  Serious: Yes (Other)
  Sender: FDA-Public Use
  Company Number: US-PFIZER INC-2008002011

PATIENT
  Sex: Female
  Weight: 57.596 kg

DRUGS (8)
  1. CHANTIX [Suspect]
     Indication: SMOKING CESSATION THERAPY
     Dosage: UNK
     Dates: start: 20070217
  2. SPIRIVA [Suspect]
     Indication: ASTHMA
     Dosage: UNK
     Dates: start: 20070101
  3. SPIRIVA [Suspect]
     Indication: CHRONIC OBSTRUCTIVE PULMONARY DISEASE
  4. SPIRIVA [Suspect]
     Indication: EMPHYSEMA
  5. ADVAIR DISKUS 100/50 [Concomitant]
     Indication: ASTHMA
     Dosage: UNK
  6. MONTELUKAST SODIUM [Concomitant]
     Dosage: UNK
  7. WELLBUTRIN [Concomitant]
     Dosage: UNK
  8. TERIPARATIDE [Concomitant]
     Indication: OSTEOPOROSIS
     Dosage: UNK

REACTIONS (6)
  - ABNORMAL DREAMS [None]
  - DRY EYE [None]
  - EYE IRRITATION [None]
  - EYE PAIN [None]
  - NAUSEA [None]
  - SLEEP DISORDER [None]
